FAERS Safety Report 10362746 (Version 1)
Quarter: 2014Q1

REPORT INFORMATION
  Report Type: Spontaneous
  Country: US (occurrence: None)
  Receive Date: 20140306
  Receipt Date: 20140306
  Transmission Date: 20141002
  Serious: Yes (Other)
  Sender: FDA-Public Use
  Company Number: 163-21880-13031302

PATIENT
  Age: 70 Year
  Sex: Female

DRUGS (9)
  1. REVLIMID (LENALIDOMIDE) (25 MILLIGRAM, CAPSULES) [Suspect]
     Indication: PLASMA CELL MYELOMA
     Route: 048
     Dates: start: 201011, end: 2011
  2. ACYCLOVIR [Concomitant]
  3. AMOXICILLIN [Concomitant]
  4. AREDIA (PAMIDRONATE DISODIUM) [Concomitant]
  5. CENTRUM SILVER [Concomitant]
  6. CYCLOBENZAPRINE HCL [Concomitant]
  7. DEXAMETHASONE [Concomitant]
  8. FENTANYL [Concomitant]
  9. PANTOPRAZOLE SODIUM [Concomitant]

REACTIONS (1)
  - Thrombosis [None]
